FAERS Safety Report 21546977 (Version 4)
Quarter: 2023Q1

REPORT INFORMATION
  Report Type: Report from Study
  Country: US (occurrence: US)
  Receive Date: 20221103
  Receipt Date: 20230113
  Transmission Date: 20230418
  Serious: Yes (Hospitalization)
  Sender: FDA-Public Use
  Company Number: US-002147023-NVSC2022US247766

PATIENT
  Sex: Male

DRUGS (2)
  1. ENTRESTO [Suspect]
     Active Substance: SACUBITRIL\VALSARTAN
     Indication: Product used for unknown indication
     Dosage: 1 DOSAGE FORM (24/26MG), BID (HALF A TABLET IN THE MORNING AND HALF OF A TABLET IN THE EVENING)
     Route: 048
     Dates: start: 20220812
  2. ENTRESTO [Suspect]
     Active Substance: SACUBITRIL\VALSARTAN
     Dosage: 0.5 DOSAGE FORM (24/26MG), BID
     Route: 048

REACTIONS (3)
  - Cough [Unknown]
  - Wrong technique in product usage process [Unknown]
  - Drug ineffective [Unknown]
